FAERS Safety Report 22232563 (Version 1)
Quarter: 2023Q2

REPORT INFORMATION
  Report Type: Spontaneous
  Country: US (occurrence: None)
  Receive Date: 20230420
  Receipt Date: 20230420
  Transmission Date: 20230721
  Serious: No
  Sender: FDA-Public Use
  Company Number: US-ROCHE-3050138

PATIENT
  Age: 19 Year
  Sex: Male
  Weight: 75 kg

DRUGS (1)
  1. ESBRIET [Suspect]
     Active Substance: PIRFENIDONE
     Indication: Pulmonary fibrosis
     Dosage: 167 MG TABLETS THREE TIMES A DAY ;ONGOING: YES
     Route: 048
     Dates: start: 20220117

REACTIONS (2)
  - Nausea [Unknown]
  - Sleep disorder [Unknown]
